FAERS Safety Report 4683987-1 (Version None)
Quarter: 2005Q2

REPORT INFORMATION
  Report Type: 
  Country: None (occurrence: None)
  Receive Date: 20050602
  Receipt Date: 20050301
  Transmission Date: 20051028
  Serious: No
  Sender: FDA-Public Use
  Company Number: 200510373BWH

PATIENT
  Sex: Female

DRUGS (2)
  1. LEVITRA [Suspect]
  2. AMBIEN [Concomitant]

REACTIONS (2)
  - INITIAL INSOMNIA [None]
  - LIBIDO INCREASED [None]
